FAERS Safety Report 12098750 (Version 2)
Quarter: 2016Q1

REPORT INFORMATION
  Report Type: Spontaneous
  Country: BR (occurrence: BR)
  Receive Date: 20160222
  Receipt Date: 20160225
  Transmission Date: 20160526
  Serious: Yes (Other)
  Sender: FDA-Public Use
  Company Number: BR-ROCHE-1712182

PATIENT
  Sex: Female

DRUGS (4)
  1. CARBOPLATIN. [Suspect]
     Active Substance: CARBOPLATIN
     Indication: OVARIAN CANCER
     Route: 065
  2. GEMZAR [Suspect]
     Active Substance: GEMCITABINE HYDROCHLORIDE
     Indication: OVARIAN CANCER
     Route: 065
  3. AVASTIN [Suspect]
     Active Substance: BEVACIZUMAB
     Indication: OVARIAN CANCER
     Route: 065
     Dates: end: 20140624
  4. LIPOSOMAL DOXORUBICIN [Concomitant]
     Active Substance: DOXORUBICIN HYDROCHLORIDE
     Route: 065
     Dates: start: 20151230

REACTIONS (7)
  - Nephrotic syndrome [Recovered/Resolved]
  - Dyslipidaemia [Recovered/Resolved]
  - Carbohydrate antigen 125 increased [Unknown]
  - Hypertension [Recovered/Resolved]
  - Generalised oedema [Recovered/Resolved]
  - Proteinuria [Recovered/Resolved]
  - Female genital tract fistula [Recovered/Resolved]
